FAERS Safety Report 6078654-6 (Version None)
Quarter: 2009Q1

REPORT INFORMATION
  Report Type: 
  Country: None (occurrence: None)
  Receive Date: 20090216
  Receipt Date: 20090205
  Transmission Date: 20090719
  Serious: Yes (Other)
  Sender: FDA-Public Use
  Company Number: PHEH2009US01442

PATIENT
  Sex: Female

DRUGS (1)
  1. FOCALIN XR [Suspect]
     Dosage: UNK
     Route: 064

REACTIONS (2)
  - DEPRESSION [None]
  - SUICIDAL IDEATION [None]
